FAERS Safety Report 14425907 (Version 1)
Quarter: 2018Q1

REPORT INFORMATION
  Report Type: Spontaneous
  Country: US (occurrence: US)
  Receive Date: 20180123
  Receipt Date: 20180123
  Transmission Date: 20180509
  Serious: Yes (Other)
  Sender: FDA-Public Use
  Company Number: US-BAYER-2018-012674

PATIENT
  Age: 34 Year
  Sex: Female

DRUGS (1)
  1. MIRENA [Suspect]
     Active Substance: LEVONORGESTREL
     Dosage: UNK
     Dates: start: 20140725, end: 20140911

REACTIONS (11)
  - Migraine [None]
  - Nausea [None]
  - Eye pain [None]
  - Ear pain [None]
  - Vomiting [None]
  - Blindness [None]
  - Idiopathic intracranial hypertension [None]
  - Vision blurred [None]
  - Headache [None]
  - Tinnitus [None]
  - Dizziness [None]

NARRATIVE: CASE EVENT DATE: 2016
